FAERS Safety Report 21756858 (Version 1)
Quarter: 2022Q4

REPORT INFORMATION
  Report Type: Spontaneous
  Country: US (occurrence: None)
  Receive Date: 20221220
  Receipt Date: 20221220
  Transmission Date: 20230113
  Serious: No
  Sender: FDA-Public Use
  Company Number: 2022A388385

PATIENT
  Age: 69 Year
  Sex: Male
  Weight: 104.3 kg

DRUGS (2)
  1. BREZTRI [Suspect]
     Active Substance: BUDESONIDE\FORMOTEROL\GLYCOPYRROLATE
     Indication: Chronic obstructive pulmonary disease
     Dosage: 160/9/4.8 MCG, 2 INHALATIONS 2 TIMES PER DAY
     Route: 055
     Dates: start: 20221101
  2. BREZTRI [Suspect]
     Active Substance: BUDESONIDE\FORMOTEROL\GLYCOPYRROLATE
     Indication: Asthma
     Dosage: 160/9/4.8 MCG, 2 INHALATIONS 2 TIMES PER DAY
     Route: 055
     Dates: start: 20221101

REACTIONS (4)
  - Wheezing [Unknown]
  - Cough [Unknown]
  - Off label use [Unknown]
  - Wrong technique in product usage process [Unknown]

NARRATIVE: CASE EVENT DATE: 20221101
